FAERS Safety Report 5753400-1 (Version None)
Quarter: 2008Q2

REPORT INFORMATION
  Report Type: 
  Country: None (occurrence: None)
  Receive Date: 20080530
  Receipt Date: 20080513
  Transmission Date: 20081010
  Serious: Yes (Other)
  Sender: FDA-Public Use
  Company Number: US-BAYER-200824224NA

PATIENT
  Sex: Female

DRUGS (1)
  1. MIRENA [Suspect]
     Indication: DRUG USE FOR UNKNOWN INDICATION
     Route: 015
     Dates: start: 20080211, end: 20080310

REACTIONS (3)
  - ABDOMINAL PAIN LOWER [None]
  - ADNEXA UTERI CYST [None]
  - BODY TEMPERATURE INCREASED [None]
